FAERS Safety Report 20659427 (Version 1)
Quarter: 2022Q1

REPORT INFORMATION
  Report Type: Spontaneous
  Country: US (occurrence: US)
  Receive Date: 20220331
  Receipt Date: 20220331
  Transmission Date: 20220423
  Serious: Yes (Hospitalization)
  Sender: FDA-Public Use
  Company Number: US-BAYER-2022A042790

PATIENT
  Age: 77 Year
  Sex: Female

DRUGS (3)
  1. CALCIUM CARBONATE [Suspect]
     Active Substance: CALCIUM CARBONATE
     Dosage: 500 MG, BID
  2. CALCITRIOL [Suspect]
     Active Substance: CALCITRIOL
     Dosage: 0.5 DF, QD
  3. VITAMIN D3 [Suspect]
     Active Substance: CHOLECALCIFEROL
     Dosage: 5000 IU INTERNATIONAL UNIT(S), QD

REACTIONS (2)
  - Hypercalcaemia [None]
  - Chronic kidney disease [None]
